FAERS Safety Report 16127343 (Version 1)
Quarter: 2019Q2

REPORT INFORMATION
  Report Type: Spontaneous
  Country: US (occurrence: US)
  Receive Date: 20190327
  Receipt Date: 20190327
  Transmission Date: 20190711
  Serious: Yes (Hospitalization)
  Sender: FDA-Public Use
  Company Number: None

PATIENT
  Age: 29 Year
  Sex: Female
  Weight: 48.99 kg

DRUGS (1)
  1. LILETTA [Suspect]
     Active Substance: LEVONORGESTREL

REACTIONS (6)
  - Product substitution issue [None]
  - Pruritus [None]
  - Dry skin [None]
  - Mood swings [None]
  - Cyst [None]
  - Pelvic pain [None]

NARRATIVE: CASE EVENT DATE: 20190202
